FAERS Safety Report 9642252 (Version 2)
Quarter: 2013Q4

REPORT INFORMATION
  Report Type: Report from Study
  Country: BR (occurrence: BR)
  Receive Date: 20131024
  Receipt Date: 20131024
  Transmission Date: 20140711
  Serious: Yes (Other)
  Sender: FDA-Public Use
  Company Number: BR-ROCHE-1146105

PATIENT
  Sex: Female
  Weight: 76 kg

DRUGS (5)
  1. TOCILIZUMAB [Suspect]
     Indication: RHEUMATOID ARTHRITIS
     Route: 065
     Dates: start: 20120905
  2. IBUPROFEN [Concomitant]
  3. PREDNISONE [Concomitant]
  4. OMEPRAZOLE [Concomitant]
  5. FLUOXETIN [Concomitant]

REACTIONS (3)
  - Gastric disorder [Not Recovered/Not Resolved]
  - Nasopharyngitis [Unknown]
  - Dyspnoea [Unknown]
